FAERS Safety Report 12355798 (Version 3)
Quarter: 2016Q3

REPORT INFORMATION
  Report Type: Report from Study
  Country: US (occurrence: US)
  Receive Date: 20160511
  Receipt Date: 20160809
  Transmission Date: 20161109
  Serious: Yes (Hospitalization, Other)
  Sender: FDA-Public Use
  Company Number: US-BAYER-2016-055693

PATIENT
  Age: 71 Year
  Sex: Female
  Weight: 45 kg

DRUGS (22)
  1. ADEMPAS [Suspect]
     Active Substance: RIOCIGUAT
     Indication: PULMONARY ARTERIAL HYPERTENSION
     Dosage: 1 MG, UNK
  2. FLOLAN [Suspect]
     Active Substance: EPOPROSTENOL SODIUM
     Indication: PULMONARY ARTERIAL HYPERTENSION
     Dosage: UNK
     Dates: start: 20100410
  3. WARFARIN [Concomitant]
     Active Substance: WARFARIN
  4. NITRIC OXIDE. [Concomitant]
     Active Substance: NITRIC OXIDE
  5. FLOLAN [Suspect]
     Active Substance: EPOPROSTENOL SODIUM
     Indication: PULMONARY ARTERIAL HYPERTENSION
     Dosage: 40.15NG/KG/MIN
  6. OPSUMIT [Suspect]
     Active Substance: MACITENTAN
  7. ADEMPAS [Suspect]
     Active Substance: RIOCIGUAT
     Indication: PULMONARY ARTERIAL HYPERTENSION
     Dosage: 2 MG, TID
     Route: 048
  8. ADEMPAS [Suspect]
     Active Substance: RIOCIGUAT
     Indication: PULMONARY ARTERIAL HYPERTENSION
     Dosage: 2 MG, TID
     Route: 048
  9. FLOLAN [Suspect]
     Active Substance: EPOPROSTENOL SODIUM
     Indication: PULMONARY ARTERIAL HYPERTENSION
     Dosage: UNK
     Dates: start: 20100410
  10. FLOLAN [Suspect]
     Active Substance: EPOPROSTENOL SODIUM
     Indication: PULMONARY ARTERIAL HYPERTENSION
     Dosage: 47.55NG/KG/MIN, CO
  11. FLOLAN [Suspect]
     Active Substance: EPOPROSTENOL SODIUM
     Indication: PULMONARY ARTERIAL HYPERTENSION
     Dosage: UNK
     Dates: start: 20100406
  12. COUMADIN [Suspect]
     Active Substance: WARFARIN SODIUM
  13. ADCIRCA [Concomitant]
     Active Substance: TADALAFIL
  14. FLOLAN [Suspect]
     Active Substance: EPOPROSTENOL SODIUM
     Indication: PULMONARY ARTERIAL HYPERTENSION
     Dosage: UNK
  15. ADEMPAS [Suspect]
     Active Substance: RIOCIGUAT
     Indication: PULMONARY ARTERIAL HYPERTENSION
     Dosage: 2 MG, UNK
     Dates: start: 20140702
  16. FLOLAN [Suspect]
     Active Substance: EPOPROSTENOL SODIUM
     Indication: PULMONARY ARTERIAL HYPERTENSION
     Dosage: 40.15NG/KG/MIN, 45000NG/ML/DAY, 1.5MG
     Route: 042
     Dates: start: 20100330
  17. FLOLAN [Suspect]
     Active Substance: EPOPROSTENOL SODIUM
     Indication: PULMONARY ARTERIAL HYPERTENSION
     Dosage: 40.76NG/KG/MIN, CONTINUOUS
     Route: 042
     Dates: start: 20100409
  18. FLOLAN [Suspect]
     Active Substance: EPOPROSTENOL SODIUM
     Indication: PULMONARY ARTERIAL HYPERTENSION
     Dosage: 40.15NG/KG/MIN
  19. FLOLAN [Suspect]
     Active Substance: EPOPROSTENOL SODIUM
     Indication: PULMONARY ARTERIAL HYPERTENSION
     Dosage: 39.6NG/KG/MIN, CO
  20. FLOLAN [Suspect]
     Active Substance: EPOPROSTENOL SODIUM
     Indication: PULMONARY ARTERIAL HYPERTENSION
     Dosage: 22NG/KG/MIN, CO
     Route: 042
  21. ADEMPAS [Suspect]
     Active Substance: RIOCIGUAT
     Indication: PULMONARY ARTERIAL HYPERTENSION
     Dosage: UNK
  22. FLOLAN [Suspect]
     Active Substance: EPOPROSTENOL SODIUM
     Indication: PULMONARY ARTERIAL HYPERTENSION
     Dosage: 40.76NG/KG/MIN, CONTINUOUSLY
     Route: 042
     Dates: start: 20100409

REACTIONS (23)
  - Anaemia [Unknown]
  - Nausea [None]
  - Catheter site swelling [None]
  - Hospitalisation [None]
  - Vomiting [Unknown]
  - Oedema [None]
  - Weight decreased [None]
  - Hepatic neoplasm [None]
  - Fluid overload [None]
  - Catheter site pain [None]
  - Therapeutic response decreased [None]
  - Fluid retention [None]
  - Abdominal distension [None]
  - Pulmonary hypertension [Not Recovered/Not Resolved]
  - Blood count abnormal [None]
  - Hypoxia [None]
  - Cardiac murmur [None]
  - Pancreatic neoplasm [None]
  - Dizziness [Unknown]
  - Haemoptysis [None]
  - Peripheral swelling [None]
  - Catheter site erythema [None]
  - Joint swelling [None]

NARRATIVE: CASE EVENT DATE: 20150927
